FAERS Safety Report 12752139 (Version 1)
Quarter: 2016Q3

REPORT INFORMATION
  Report Type: Spontaneous
  Country: US (occurrence: US)
  Receive Date: 20160915
  Receipt Date: 20160915
  Transmission Date: 20161109
  Serious: Yes (Hospitalization)
  Sender: FDA-Public Use
  Company Number: None

PATIENT
  Age: 74 Year
  Sex: Male
  Weight: 88.1 kg

DRUGS (3)
  1. DEXAMETHASONE. [Suspect]
     Active Substance: DEXAMETHASONE
     Dates: end: 20160910
  2. LENALIDOMIDE (CC-5013) [Suspect]
     Active Substance: LENALIDOMIDE
     Dates: end: 20160911
  3. VELCADE [Suspect]
     Active Substance: BORTEZOMIB
     Dates: end: 20160909

REACTIONS (3)
  - Heart rate irregular [None]
  - Peripheral swelling [None]
  - Back pain [None]

NARRATIVE: CASE EVENT DATE: 20160908
